FAERS Safety Report 4737170-1 (Version None)
Quarter: 2005Q3

REPORT INFORMATION
  Report Type: 
  Country: None (occurrence: None)
  Receive Date: 20050728
  Receipt Date: 20050607
  Transmission Date: 20060218
  Serious: No
  Sender: FDA-Public Use
  Company Number: 200513991US

PATIENT
  Age: 76 Year
  Sex: Female
  Weight: 77.3 kg

DRUGS (3)
  1. KETEK [Suspect]
     Indication: SINUS DISORDER
     Dosage: 400 MG ONCE
     Dates: start: 20050502, end: 20050503
  2. KETEK [Suspect]
     Indication: THROAT IRRITATION
     Dosage: 400 MG ONCE
     Dates: start: 20050502, end: 20050503
  3. SYNTHROID [Concomitant]

REACTIONS (2)
  - ORAL ADMINISTRATION COMPLICATION [None]
  - OROPHARYNGEAL SWELLING [None]
